FAERS Safety Report 8832867 (Version 1)
Quarter: 2012Q4

REPORT INFORMATION
  Report Type: Spontaneous
  Country: US (occurrence: None)
  Receive Date: 20121009
  Receipt Date: 20121009
  Transmission Date: 20130627
  Serious: Yes (Hospitalization)
  Sender: FDA-Public Use
  Company Number: None

PATIENT
  Age: 79 Year
  Sex: Female
  Weight: 104.78 kg

DRUGS (2)
  1. FERUMOXYTOL [Suspect]
     Indication: IRON DEFICIENCY ANEMIA
     Dosage: single dose
     Dates: start: 20120614, end: 20120614
  2. COUMADIN [Concomitant]

REACTIONS (3)
  - Vasculitis [None]
  - Infection [None]
  - Sepsis [None]
